FAERS Safety Report 4610094-6 (Version None)
Quarter: 2005Q1

REPORT INFORMATION
  Report Type: 
  Country: None (occurrence: None)
  Receive Date: 20050314
  Receipt Date: 20050307
  Transmission Date: 20050727
  Serious: Yes (Death, Life-Threatening, Hospitalization)
  Sender: FDA-Public Use
  Company Number: HQWYE210510FEB05

PATIENT
  Age: 62 Year
  Sex: Female

DRUGS (4)
  1. RAPAMUNE [Suspect]
     Indication: IMMUNOSUPPRESSANT DRUG THERAPY
     Dosage: 4 M G 1X PER 1 DAY, ORAL
     Route: 048
     Dates: end: 20050208
  2. RAPAMUNE [Suspect]
     Indication: PROPHYLAXIS AGAINST TRANSPLANT REJECTION
     Dosage: 4 M G 1X PER 1 DAY, ORAL
     Route: 048
     Dates: end: 20050208
  3. MYCOPHENOLATE MOFETIL (MYCOPHENOLATE MOFETIL) [Concomitant]
  4. CORTICOSTEROID NOS (CORTICOSTEROID NOS) [Concomitant]

REACTIONS (9)
  - BACTERIAL INFECTION [None]
  - BRADYCARDIA [None]
  - LUNG NEOPLASM [None]
  - MYCOBACTERIUM AVIUM COMPLEX INFECTION [None]
  - PULSE ABSENT [None]
  - SEPTIC SHOCK [None]
  - TACHYCARDIA [None]
  - THERAPY NON-RESPONDER [None]
  - VENTRICULAR TACHYCARDIA [None]
